FAERS Safety Report 13075941 (Version 6)
Quarter: 2017Q1

REPORT INFORMATION
  Report Type: Spontaneous
  Country: JP (occurrence: JP)
  Receive Date: 20161230
  Receipt Date: 20170223
  Transmission Date: 20170428
  Serious: Yes (Hospitalization, Congenital Anomaly, Other)
  Sender: FDA-Public Use
  Company Number: JP-009507513-1612JPN014638

PATIENT
  Age: 0 Day
  Sex: Male
  Weight: 2.9 kg

DRUGS (8)
  1. HIRUDOID [Concomitant]
     Active Substance: GLYCOSAMINOGLYCANS
     Dosage: UNK, PRN
     Route: 064
  2. LORAZEPAM. [Suspect]
     Active Substance: LORAZEPAM
     Dosage: 1 MG, QD
     Route: 064
  3. ANTEBATE [Suspect]
     Active Substance: BETAMETHASONE DIPROPIONATE
     Dosage: UNK, PRN
     Route: 064
  4. WYPAX [Suspect]
     Active Substance: LORAZEPAM
     Dosage: 1 MG, PRN
     Route: 064
  5. BELSOMRA [Suspect]
     Active Substance: SUVOREXANT
     Dosage: 20 MG, QD
     Route: 064
  6. FLUNITRAZEPAM [Suspect]
     Active Substance: FLUNITRAZEPAM
     Dosage: 1 MG, QD
     Route: 064
  7. MYSER (DIFLUPREDNATE) [Suspect]
     Active Substance: DIFLUPREDNATE
     Dosage: UNK, PRN
     Route: 064
  8. NITRAZEPAM [Suspect]
     Active Substance: NITRAZEPAM
     Dosage: 5 MG, QD
     Route: 064

REACTIONS (2)
  - Syndactyly [Not Recovered/Not Resolved]
  - Foetal exposure during pregnancy [Recovered/Resolved]

NARRATIVE: CASE EVENT DATE: 20161227
